FAERS Safety Report 7210643 (Version 4)
Quarter: 2013Q4

REPORT INFORMATION
  Report Type: Report from Study
  Country: NL (occurrence: NL)
  Receive Date: 20091210
  Receipt Date: 20131008
  Transmission Date: 20140711
  Serious: Yes (Other)
  Sender: FDA-Public Use
  Company Number: NL-GILEAD-E2B_00000520

PATIENT
  Age: 27 Year
  Sex: Female

DRUGS (16)
  1. AMBRISENTAN [Suspect]
     Indication: PULMONARY ARTERIAL HYPERTENSION
     Dosage: 5MG PER DAY
     Route: 048
     Dates: start: 20090612, end: 20090616
  2. PREDNISOLONE [Concomitant]
     Indication: IMMUNOSUPPRESSION
     Route: 048
     Dates: start: 2005
  3. TACROLIMUS [Concomitant]
     Indication: IMMUNOSUPPRESSION
     Dosage: 500MCG TWICE PER DAY
     Route: 048
     Dates: start: 2005
  4. SILDENAFIL CITRATE [Concomitant]
     Indication: PULMONARY HYPERTENSION
     Dosage: 40 MG, TID
     Route: 048
     Dates: start: 20030212
  5. URSODEOXYCHOLZUUR [Concomitant]
     Indication: HEPATIC CIRRHOSIS
     Dosage: 600MG TWICE PER DAY
     Route: 048
     Dates: start: 2006
  6. CALCI CHEW [Concomitant]
     Indication: CALCIUM DEFICIENCY
     Route: 048
     Dates: start: 2006
  7. FERROFUMARAAT [Concomitant]
     Indication: ANAEMIA
     Dosage: 200MG PER DAY
     Route: 048
     Dates: start: 20040803
  8. NEXIUM                             /01479302/ [Concomitant]
     Indication: PROPHYLAXIS
     Dosage: 40MG PER DAY
     Route: 048
     Dates: start: 2005
  9. NEOMYCINE [Concomitant]
     Indication: PROPHYLAXIS
     Dosage: 500 MG, TID
     Route: 048
  10. VALACICLOVIR [Concomitant]
     Indication: ANTIBIOTIC PROPHYLAXIS
     Dosage: 500MG PER DAY
     Route: 048
     Dates: start: 2006
  11. VITAMINE K [Concomitant]
     Indication: VITAMIN K DEFICIENCY
  12. IUD [Concomitant]
     Indication: CONTRACEPTION
  13. METOCLOPRAMIDE [Concomitant]
     Indication: NAUSEA
     Route: 048
     Dates: start: 200811
  14. PREDNISOLON                        /00016201/ [Concomitant]
     Indication: IMMUNOSUPPRESSION
     Dosage: 10MG PER DAY
     Route: 048
     Dates: start: 2005
  15. SILDENAFIL [Concomitant]
     Indication: PULMONARY HYPERTENSION
     Dosage: 40MG EVERY 3 DAYS
     Route: 048
     Dates: start: 20030212
  16. VIT K1 [Concomitant]
     Indication: VITAMIN K DEFICIENCY

REACTIONS (1)
  - Transaminases increased [Recovered/Resolved]
